FAERS Safety Report 21207779 (Version 1)
Quarter: 2022Q3

REPORT INFORMATION
  Report Type: Spontaneous
  Country: US (occurrence: None)
  Receive Date: 20220811
  Receipt Date: 20220811
  Transmission Date: 20221027
  Serious: Yes (Death)
  Sender: FDA-Public Use
  Company Number: None

PATIENT
  Age: 91 Year
  Sex: Male

DRUGS (1)
  1. XALKORI [Suspect]
     Active Substance: CRIZOTINIB
     Dosage: FREQUENCY : TWICE A DAY;?
     Route: 048
     Dates: start: 201812

REACTIONS (1)
  - Death [None]

NARRATIVE: CASE EVENT DATE: 20220722
